FAERS Safety Report 8622783 (Version 4)
Quarter: 2012Q4

REPORT INFORMATION
  Report Type: Report from Study
  Country: FR (occurrence: FR)
  Receive Date: 20120619
  Receipt Date: 20121029
  Transmission Date: 20130627
  Serious: Yes (Hospitalization)
  Sender: FDA-Public Use
  Company Number: FR-AMGEN-FRACT2012023036

PATIENT
  Age: 42 Year
  Sex: Female
  Weight: 52 kg

DRUGS (16)
  1. DENOSUMAB [Suspect]
     Indication: HYPERCALCAEMIA OF MALIGNANCY
     Dosage: 1.7 ml, UNK
     Dates: start: 20111019, end: 20111116
  2. GEMZAR [Concomitant]
     Dosage: UNK
     Dates: start: 20111206
  3. ZOPHREN [Concomitant]
     Indication: NAUSEA
     Dosage: 8 mg, UNK
     Route: 048
     Dates: start: 20111206
  4. PEGFILGRASTIM [Concomitant]
     Dosage: 6 mg, UNK
     Route: 042
     Dates: start: 20111004
  5. PRIMPERAN [Concomitant]
     Indication: NAUSEA
     Dosage: 10 mg, UNK
     Route: 048
     Dates: start: 20111206
  6. NEORECORMON [Concomitant]
     Indication: ANAEMIA
     Dosage: 500 IU, UNK
     Route: 042
     Dates: start: 20111206
  7. TOPALGIC [Concomitant]
     Indication: NECK PAIN
     Dosage: 50 mg, UNK
     Route: 048
     Dates: start: 20111206
  8. KCL [Concomitant]
     Indication: CONDITION AGGRAVATED
     Dosage: 6 g, UNK
     Route: 042
     Dates: start: 20120219, end: 20120220
  9. SERUM PHYSIOLOGICAL [Concomitant]
     Indication: CONDITION AGGRAVATED
     Dosage: UNK
     Route: 042
     Dates: start: 20120219, end: 20120222
  10. PHOCYTAN [Concomitant]
     Indication: CONDITION AGGRAVATED
     Dosage: UNK
     Route: 042
     Dates: start: 20120219, end: 20120222
  11. KYTRIL [Concomitant]
     Indication: NAUSEA
     Dosage: 1 mg, UNK
     Route: 042
     Dates: start: 20111019
  12. KYTRIL [Concomitant]
     Indication: VOMITING
  13. FORLAX [Concomitant]
     Indication: CONSTIPATION
     Dosage: 4 g, UNK
     Route: 048
     Dates: start: 20111019
  14. MOTILIUM [Concomitant]
     Indication: NAUSEA
     Dosage: 2 mg, UNK
     Route: 048
     Dates: start: 20111019
  15. MICROLAX [Concomitant]
     Indication: CONSTIPATION
     Dosage: UNK
     Route: 054
     Dates: start: 20111206
  16. ZOMETA [Concomitant]
     Indication: HYPERCALCAEMIA
     Dosage: 4 mg, UNK
     Route: 042
     Dates: start: 20111201

REACTIONS (2)
  - Tachycardia [Recovered/Resolved]
  - Hypercalcaemia [Recovered/Resolved]
